FAERS Safety Report 4807561-9 (Version None)
Quarter: 2005Q4

REPORT INFORMATION
  Report Type: 
  Country: None (occurrence: None)
  Receive Date: 20051020
  Receipt Date: 20051011
  Transmission Date: 20060501
  Serious: Yes (Other)
  Sender: FDA-Public Use
  Company Number: PHO 2005-023

PATIENT
  Age: 68 Year
  Sex: Female

DRUGS (1)
  1. PHOTOFRIN [Suspect]
     Indication: PHOTODYNAMIC THERAPY
     Dosage: 90 MG IV
     Dates: start: 20050912

REACTIONS (10)
  - ATRIAL FIBRILLATION [None]
  - DYSPNOEA [None]
  - HAEMOGLOBIN DECREASED [None]
  - HAEMOTHORAX [None]
  - HYPOTENSION [None]
  - PNEUMONIA ASPIRATION [None]
  - POST PROCEDURAL COMPLICATION [None]
  - SEPSIS [None]
  - THERAPY NON-RESPONDER [None]
  - THROMBOSIS [None]
